FAERS Safety Report 26115456 (Version 4)
Quarter: 2025Q4

REPORT INFORMATION
  Report Type: Spontaneous
  Country: EU (occurrence: EU)
  Receive Date: 20251203
  Receipt Date: 20251226
  Transmission Date: 20260117
  Serious: Yes (Other)
  Sender: ROCHE
  Company Number: EU-002147023-NVSC2025DE183328

PATIENT
  Age: 76 Year
  Sex: Female

DRUGS (1)
  1. LUCENTIS [Suspect]
     Active Substance: RANIBIZUMAB
     Indication: Product used for unknown indication
     Dosage: UNK

REACTIONS (1)
  - Eye disorder [Recovered/Resolved]

NARRATIVE: CASE EVENT DATE: 20251121
